FAERS Safety Report 13744691 (Version 1)
Quarter: 2017Q3

REPORT INFORMATION
  Report Type: Spontaneous
  Country: US (occurrence: US)
  Receive Date: 20170711
  Receipt Date: 20170711
  Transmission Date: 20171127
  Serious: Yes (Life-Threatening, Other)
  Sender: FDA-Public Use
  Company Number: None

PATIENT
  Sex: Female
  Weight: 72 kg

DRUGS (1)
  1. LIDODERM [Suspect]
     Active Substance: LIDOCAINE
     Indication: PAIN
     Dosage: 3 PATCH(ES); DAILY; TRANSDERMAL?
     Route: 062

REACTIONS (5)
  - Anaphylactic reaction [None]
  - Rash [None]
  - Dyspnoea [None]
  - Urticaria [None]
  - Hypersensitivity [None]
